FAERS Safety Report 15669345 (Version 1)
Quarter: 2018Q4

REPORT INFORMATION
  Report Type: Other
  Country: CA (occurrence: US)
  Receive Date: 20181129
  Receipt Date: 20181129
  Transmission Date: 20190205
  Serious: No
  Sender: FDA-Public Use
  Company Number: US-APOLLO HEALTH AND BEAUTY CARE INC.-2059386

PATIENT
  Sex: Male

DRUGS (1)
  1. EQUATE DRY SCALP 2 IN 1 DANDRUFF [Suspect]
     Active Substance: PYRITHIONE ZINC

REACTIONS (1)
  - Blister [None]
